FAERS Safety Report 6607704-0 (Version None)
Quarter: 2010Q1

REPORT INFORMATION
  Report Type: 
  Country: None (occurrence: None)
  Receive Date: 20100301
  Receipt Date: 20100222
  Transmission Date: 20100710
  Serious: Yes (Other)
  Sender: FDA-Public Use
  Company Number: US-JNJFOC-20100209811

PATIENT
  Sex: Female
  Weight: 58.97 kg

DRUGS (3)
  1. REMICADE [Suspect]
     Indication: CROHN'S DISEASE
     Dosage: 2 OR 3 VIALS EVERY 7 TO 8 WEEKS
     Route: 042
  2. LEVOTHROID [Concomitant]
  3. VITAMINS NOS [Concomitant]

REACTIONS (9)
  - ABDOMINAL PAIN UPPER [None]
  - ARTHRALGIA [None]
  - BLOOD PRESSURE INCREASED [None]
  - FATIGUE [None]
  - HEADACHE [None]
  - NEURALGIA [None]
  - OROPHARYNGEAL PAIN [None]
  - VAGINAL FISTULA [None]
  - VASCULITIS [None]
